FAERS Safety Report 23577483 (Version 1)
Quarter: 2024Q1

REPORT INFORMATION
  Report Type: Spontaneous
  Country: CZ (occurrence: CZ)
  Receive Date: 20240228
  Receipt Date: 20240228
  Transmission Date: 20240410
  Serious: Yes (Hospitalization, Other)
  Sender: FDA-Public Use
  Company Number: CZ-FreseniusKabi-FK202402999

PATIENT
  Age: 43 Year
  Sex: Male

DRUGS (8)
  1. GEMCITABINE [Suspect]
     Active Substance: GEMCITABINE
     Indication: Pancreatic carcinoma
     Dosage: IN DECEMBER 2021, THE FIRST LINE OF PALLIATIVE CHEMOTHERAPY WAS STARTED WITH THE COMBINATION OF NAB-
     Dates: start: 202112
  2. GEMCITABINE [Suspect]
     Active Substance: GEMCITABINE
     Dates: start: 202207
  3. OXALIPLATIN [Suspect]
     Active Substance: OXALIPLATIN
     Indication: Pancreatic carcinoma
     Dosage: MFOLFIRINOX?THE FIFTH SERIES WAS POSTPONED AND ALL COMPONENTS OF CHEMOTHERAPY HAD TO BE REDUCED TO 7
     Dates: start: 202105
  4. LEUCOVORIN [Suspect]
     Active Substance: LEUCOVORIN\LEUCOVORIN CALCIUM
     Indication: Pancreatic carcinoma
     Dosage: MFOLFIRINOX?THE FIFTH SERIES WAS POSTPONED AND ALL COMPONENTS OF CHEMOTHERAPY HAD TO BE REDUCED TO 7
     Dates: start: 202105
  5. IRINOTECAN HYDROCHLORIDE [Suspect]
     Active Substance: IRINOTECAN HYDROCHLORIDE
     Indication: Pancreatic carcinoma
     Dosage: MFOLFIRINOX?THE FIFTH SERIES WAS POSTPONED AND ALL COMPONENTS OF CHEMOTHERAPY HAD TO BE REDUCED TO 7
     Dates: start: 202105
  6. PACLITAXEL [Suspect]
     Active Substance: PACLITAXEL
     Indication: Pancreatic carcinoma
     Dosage: IN DECEMBER 2021, THE FIRST LINE OF PALLIATIVE CHEMOTHERAPY WAS STARTED WITH THE COMBINATION OF NAB-
     Dates: start: 202112
  7. PACLITAXEL [Suspect]
     Active Substance: PACLITAXEL
     Dates: start: 202207
  8. FLUOROURACIL [Suspect]
     Active Substance: FLUOROURACIL
     Indication: Pancreatic carcinoma
     Dosage: MFOLFIRINOX?THE FIFTH SERIES WAS POSTPONED AND ALL COMPONENTS OF CHEMOTHERAPY HAD TO BE REDUCED TO 7
     Dates: start: 202105

REACTIONS (3)
  - Neutropenia [Unknown]
  - Haematotoxicity [Unknown]
  - Ototoxicity [Unknown]
